FAERS Safety Report 5716290-9 (Version None)
Quarter: 2008Q2

REPORT INFORMATION
  Report Type: 
  Country: None (occurrence: None)
  Receive Date: 20080424
  Receipt Date: 20080414
  Transmission Date: 20081010
  Serious: Yes (Death, Life-Threatening, Hospitalization)
  Sender: FDA-Public Use
  Company Number: B0517467A

PATIENT
  Age: 76 Year
  Sex: Male

DRUGS (8)
  1. AUGMENTIN '125' [Suspect]
     Route: 042
     Dates: start: 20080305, end: 20080310
  2. IMUREL [Suspect]
     Indication: NEPHROTIC SYNDROME
     Route: 048
     Dates: start: 20080228, end: 20080314
  3. OFLOCET [Suspect]
     Route: 042
     Dates: start: 20080304, end: 20080305
  4. ROCEPHIN [Suspect]
     Route: 042
     Dates: start: 20080304, end: 20080305
  5. TAVANIC [Suspect]
     Route: 042
     Dates: start: 20080305, end: 20080310
  6. CORTANCYL [Suspect]
     Indication: NEPHROTIC SYNDROME
     Route: 048
     Dates: start: 20080101, end: 20080315
  7. TIENAM [Concomitant]
     Route: 065
     Dates: start: 20080310
  8. GENTAMICIN [Concomitant]
     Route: 065
     Dates: start: 20080310

REACTIONS (9)
  - ANAEMIA [None]
  - BRONCHOPNEUMONIA [None]
  - CARDIAC DISORDER [None]
  - NEUTROPENIA [None]
  - PANCYTOPENIA [None]
  - RESPIRATORY DEPRESSION [None]
  - SEPTIC SHOCK [None]
  - THROMBOCYTOPENIA [None]
  - WHITE BLOOD CELL COUNT INCREASED [None]
